FAERS Safety Report 7652085-7 (Version None)
Quarter: 2011Q3

REPORT INFORMATION
  Report Type: 
  Country: None (occurrence: None)
  Receive Date: 20110803
  Receipt Date: 20081120
  Transmission Date: 20111222
  Serious: No
  Sender: FDA-Public Use
  Company Number: 2008BI029710

PATIENT
  Sex: Female

DRUGS (4)
  1. BUSPIRONE HCL [Concomitant]
     Indication: PRODUCT USED FOR UNKNOWN INDICATION
  2. TYSABRI [Suspect]
     Indication: MULTIPLE SCLEROSIS
     Route: 042
     Dates: start: 20081007, end: 20081104
  3. AMITRIPTYLINE HCL [Concomitant]
     Indication: PRODUCT USED FOR UNKNOWN INDICATION
  4. KEPPRA [Concomitant]
     Indication: CONVULSION PROPHYLAXIS

REACTIONS (5)
  - SPINAL DISORDER [None]
  - NAUSEA [None]
  - CONFUSIONAL STATE [None]
  - HEADACHE [None]
  - ABDOMINAL PAIN UPPER [None]
